FAERS Safety Report 8059848-7 (Version None)
Quarter: 2012Q1

REPORT INFORMATION
  Report Type: 
  Country: None (occurrence: None)
  Receive Date: 20120120
  Receipt Date: 20120111
  Transmission Date: 20120608
  Serious: Yes (Hospitalization)
  Sender: FDA-Public Use
  Company Number: US-ELI_LILLY_AND_COMPANY-US201111005590

PATIENT
  Sex: Female

DRUGS (9)
  1. ANTIHYPERTENSIVES [Concomitant]
  2. ADCIRCA [Suspect]
     Indication: PULMONARY ARTERIAL HYPERTENSION
     Dosage: 40 MG, QD
     Dates: start: 20111108, end: 20111208
  3. ALTACE [Concomitant]
     Dosage: 10 MG, UNKNOWN
  4. LANOXIN [Concomitant]
     Dosage: 0.25 MG, UNKNOWN
  5. COREG CR [Concomitant]
     Dosage: 10 MG, UNKNOWN
  6. LASIX [Concomitant]
     Dosage: 40 MG, UNKNOWN
  7. COUMADIN [Concomitant]
     Dosage: 5 MG, UNKNOWN
  8. CARDIZEM CD [Concomitant]
     Dosage: 180 MG, UNKNOWN
  9. POTASSIUM CHLORIDE [Concomitant]
     Dosage: 20 MEQ, UNKNOWN

REACTIONS (4)
  - HOSPITALISATION [None]
  - ARTHRALGIA [None]
  - PAIN IN EXTREMITY [None]
  - BACK PAIN [None]
